FAERS Safety Report 8698780 (Version 2)
Quarter: 2013Q1

REPORT INFORMATION
  Report Type: Spontaneous
  Country: DK (occurrence: None)
  Receive Date: 20120717
  Receipt Date: 20121210
  Transmission Date: 20140127
  Serious: Yes (Other)
  Sender: FDA-Public Use
  Company Number: 2012MA008386

PATIENT
  Age: 55 Year
  Sex: Male

DRUGS (5)
  1. ALTACE [Suspect]
     Indication: HYPERTENSION
  2. AMLODIPINE [Suspect]
     Indication: HYPERTENSION
  3. SIMVASTATIN [Suspect]
     Indication: BLOOD CHOLESTEROL INCREASED
  4. LOSARTAN POTASSIUM [Suspect]
     Indication: PRODUCT USED FOR UNKNOWN INDICATION
  5. LERCANIDIPINE (LERCANIDIPINE) [Suspect]

REACTIONS (11)
  - Confusional state [None]
  - Blood pressure increased [None]
  - Fatigue [None]
  - Dyspnoea [None]
  - Myalgia [None]
  - Dysstasia [None]
  - Gait disturbance [None]
  - Feeling abnormal [None]
  - Depressed mood [None]
  - Throat irritation [None]
  - Drug interaction [None]
